FAERS Safety Report 14881791 (Version 1)
Quarter: 2018Q2

REPORT INFORMATION
  Report Type: Spontaneous
  Country: US (occurrence: US)
  Receive Date: 20180425
  Receipt Date: 20180425
  Transmission Date: 20180711
  Serious: No
  Sender: FDA-Public Use
  Company Number: None

PATIENT
  Age: 54 Year
  Sex: Female
  Weight: 64 kg

DRUGS (3)
  1. CAREFUSION SMARTSITE INFUSION SET PRODUCT #10015489 [Concomitant]
     Dates: start: 20180411, end: 20180413
  2. MORPHINE SULFATE INJECTION [Suspect]
     Active Substance: MORPHINE SULFATE
     Indication: PAIN
     Route: 042
     Dates: start: 20180411, end: 20180413
  3. 0.9% SODIUM CHLORIDE 1,000 ML IV INFUSION [Concomitant]
     Dates: start: 20180411, end: 20180413

REACTIONS (3)
  - Wrong technique in device usage process [None]
  - Device dislocation [None]
  - Haemorrhage [None]

NARRATIVE: CASE EVENT DATE: 20180411
